FAERS Safety Report 6196023-5 (Version None)
Quarter: 2009Q2

REPORT INFORMATION
  Report Type: 
  Country: None (occurrence: None)
  Receive Date: 20090520
  Receipt Date: 20040401
  Transmission Date: 20091009
  Serious: Yes (Hospitalization)
  Sender: FDA-Public Use
  Company Number: NL-ROCHE-599046

PATIENT
  Sex: Male

DRUGS (9)
  1. CAPECITABINE [Suspect]
     Dosage: DOSE REPORTED AS 2 X 1800MG.
     Route: 048
     Dates: start: 20031024, end: 20031029
  2. CAPECITABINE [Suspect]
     Route: 048
     Dates: start: 20031224, end: 20031227
  3. IRINOTECAN HCL [Suspect]
     Route: 042
     Dates: start: 20031024, end: 20031024
  4. PRIMPERAN [Concomitant]
  5. MORPHINE [Concomitant]
  6. PANTOZOL [Concomitant]
  7. MAGNESIUM OXIDE [Concomitant]
  8. ACETAMINOPHEN [Concomitant]
  9. OXAZEPAM [Concomitant]

REACTIONS (4)
  - ABDOMINAL PAIN [None]
  - HYDRONEPHROSIS [None]
  - ILEUS [None]
  - RENAL FAILURE [None]
